FAERS Safety Report 18504799 (Version 1)
Quarter: 2020Q4

REPORT INFORMATION
  Report Type: Spontaneous
  Country: US (occurrence: US)
  Receive Date: 20201115
  Receipt Date: 20201115
  Transmission Date: 20210114
  Serious: No
  Sender: FDA-Public Use
  Company Number: US-HORIZON-2020HZN01106

PATIENT
  Age: 48 Year
  Sex: Female
  Weight: 65.78 kg

DRUGS (1)
  1. TEPEZZA [Suspect]
     Active Substance: TEPROTUMUMAB-TRBW
     Indication: TOXIC GOITRE
     Route: 050

REACTIONS (2)
  - Pyrexia [Unknown]
  - Suspected COVID-19 [Unknown]
